FAERS Safety Report 10576366 (Version 1)
Quarter: 2014Q4

REPORT INFORMATION
  Report Type: Spontaneous
  Country: IN (occurrence: IN)
  Receive Date: 20141111
  Receipt Date: 20141111
  Transmission Date: 20150529
  Serious: Yes (Death)
  Sender: FDA-Public Use
  Company Number: IN-009507513-1411IND004161

PATIENT
  Age: 46 Year
  Sex: Male
  Weight: 71 kg

DRUGS (1)
  1. JANUVIA [Suspect]
     Active Substance: SITAGLIPTIN PHOSPHATE
     Indication: DIABETES MELLITUS
     Dosage: 1 DF, QD (STRENGTH 100 MG, 1 TAB/DAY)
     Route: 048

REACTIONS (1)
  - Accident [Fatal]

NARRATIVE: CASE EVENT DATE: 201410
